FAERS Safety Report 8803731 (Version 1)
Quarter: 2012Q4

REPORT INFORMATION
  Report Type: 
  Country: US (occurrence: US)
  Receive Date: 20120924
  Receipt Date: 20120924
  Transmission Date: 20130627
  Serious: Yes (Other)
  Sender: FDA-Public Use
  Company Number: US-PFIZER INC-2012233207

PATIENT
  Age: 58 Year
  Sex: Female

DRUGS (1)
  1. TIKOSYN [Suspect]
     Dosage: 250 ug, 2x/day

REACTIONS (2)
  - Cardiac disorder [Unknown]
  - Urinary tract infection bacterial [Unknown]
